FAERS Safety Report 13542356 (Version 1)
Quarter: 2017Q2

REPORT INFORMATION
  Report Type: Spontaneous
  Country: US (occurrence: US)
  Receive Date: 20170512
  Receipt Date: 20170512
  Transmission Date: 20170830
  Serious: Yes (Hospitalization)
  Sender: FDA-Public Use
  Company Number: US-ROCHE-775371

PATIENT
  Age: 48 Year
  Sex: Female
  Weight: 79.4 kg

DRUGS (3)
  1. FLUOROURACIL. [Concomitant]
     Active Substance: FLUOROURACIL
     Route: 065
     Dates: start: 20110418, end: 20110420
  2. AVASTIN [Suspect]
     Active Substance: BEVACIZUMAB
     Indication: COLON CANCER
     Dosage: ONE DOSE ONLY
     Route: 042
  3. ELOXATIN [Concomitant]
     Active Substance: OXALIPLATIN
     Route: 065

REACTIONS (3)
  - Hypertensive crisis [Unknown]
  - Blood pressure increased [Not Recovered/Not Resolved]
  - Headache [Recovered/Resolved]

NARRATIVE: CASE EVENT DATE: 20110418
